FAERS Safety Report 21434905 (Version 3)
Quarter: 2022Q4

REPORT INFORMATION
  Report Type: Spontaneous
  Country: US (occurrence: US)
  Receive Date: 20221010
  Receipt Date: 20221220
  Transmission Date: 20230113
  Serious: Yes (Other)
  Sender: FDA-Public Use
  Company Number: US-ELI_LILLY_AND_COMPANY-US202209012231

PATIENT
  Sex: Female

DRUGS (8)
  1. HUMULIN 70/30 [Suspect]
     Active Substance: INSULIN HUMAN
     Indication: Product used for unknown indication
     Dosage: UNK UNK, UNKNOWN
     Route: 065
  2. AMITRIPTYLINE [Concomitant]
     Active Substance: AMITRIPTYLINE
     Indication: Craniocerebral injury
     Dosage: 3 TABLETS, EACH EVENING (AT BED TIME)
  3. ATIVAN [Concomitant]
     Active Substance: LORAZEPAM
     Indication: Product used for unknown indication
     Dosage: 1 TABLET, OTHER (AT NOON)
  4. ATIVAN [Concomitant]
     Active Substance: LORAZEPAM
     Dosage: 1 TABLET, EACH EVENING (EVERY NIGHT, BED TIME)
  5. AMLODIPINE BESYLATE [Concomitant]
     Active Substance: AMLODIPINE BESYLATE
     Indication: Blood pressure abnormal
     Dosage: 1 DOSAGE FORM, DAILY
     Route: 048
  6. ATENOLOL [Concomitant]
     Active Substance: ATENOLOL
     Indication: Blood pressure abnormal
     Dosage: UNK, BID
  7. MOTIDINE [Concomitant]
     Indication: Gastric disorder
     Dosage: UNK, BID
  8. SEROQUEL [Concomitant]
     Active Substance: QUETIAPINE FUMARATE
     Indication: Panic attack
     Dosage: ONE TO TWO TABLETS, EACH MORNING

REACTIONS (6)
  - Carpal tunnel syndrome [Not Recovered/Not Resolved]
  - Pain in extremity [Not Recovered/Not Resolved]
  - Rash [Not Recovered/Not Resolved]
  - Hyperglycaemia [Unknown]
  - Panic attack [Unknown]
  - Peripheral swelling [Not Recovered/Not Resolved]
